FAERS Safety Report 21742935 (Version 1)
Quarter: 2022Q4

REPORT INFORMATION
  Report Type: Report from Study
  Country: US (occurrence: US)
  Receive Date: 20221217
  Receipt Date: 20221217
  Transmission Date: 20230113
  Serious: Yes (Other)
  Sender: FDA-Public Use
  Company Number: US-ABBVIE-4239827

PATIENT
  Sex: Female

DRUGS (1)
  1. HUMIRA [Suspect]
     Active Substance: ADALIMUMAB
     Indication: Rheumatoid arthritis
     Dosage: THERAPY CESSATION DATE SHOULD BE ATLEAST: 2022
     Route: 058
     Dates: start: 20220329

REACTIONS (5)
  - Anal cancer [Unknown]
  - Rheumatoid arthritis [Unknown]
  - Rectal haemorrhage [Unknown]
  - Proctalgia [Unknown]
  - Illness [Unknown]
